FAERS Safety Report 9659167 (Version 2)
Quarter: 2013Q4

REPORT INFORMATION
  Report Type: Spontaneous
  Country: FR (occurrence: FR)
  Receive Date: 20131031
  Receipt Date: 20131211
  Transmission Date: 20140711
  Serious: Yes (Other)
  Sender: FDA-Public Use
  Company Number: FR-009507513-1310FRA011332

PATIENT
  Age: 49 Year
  Sex: Female
  Weight: 51 kg

DRUGS (6)
  1. EMEND [Suspect]
     Indication: COLORECTAL CANCER
     Dosage: 125 MG, UNKNOWN
     Route: 048
     Dates: start: 20130725
  2. ELVORINE [Suspect]
     Indication: COLORECTAL CANCER
     Dosage: 235 MG, UNKNOWN
     Route: 042
     Dates: start: 20130725
  3. OXALIPLATIN [Suspect]
     Indication: COLORECTAL CANCER
     Dosage: 100 MG, UNKNOWN
     Route: 042
     Dates: start: 20130725
  4. FLUOROURACIL [Suspect]
     Indication: COLORECTAL CANCER
     Dosage: 2825 MG, UNKNOWN
     Route: 042
     Dates: start: 20130725
  5. ONDANSETRON [Suspect]
     Indication: COLORECTAL CANCER
     Dosage: 8 MG, QD
     Route: 042
     Dates: start: 20130725
  6. METHYLPREDNISOLONE [Suspect]
     Indication: COLORECTAL CANCER
     Dosage: 80 MG, UNKNOWN
     Route: 042
     Dates: start: 20130725

REACTIONS (2)
  - Cholestasis [Recovering/Resolving]
  - Hepatocellular injury [Recovering/Resolving]
